FAERS Safety Report 16107089 (Version 2)
Quarter: 2019Q3

REPORT INFORMATION
  Report Type: Spontaneous
  Country: CA (occurrence: CA)
  Receive Date: 20190322
  Receipt Date: 20190826
  Transmission Date: 20191004
  Serious: Yes (Death, Hospitalization, Other)
  Sender: FDA-Public Use
  Company Number: CA-SHIRE-CA201908976

PATIENT

DRUGS (22)
  1. VANCOMYCIN [Suspect]
     Active Substance: VANCOMYCIN
     Indication: PYREXIA
     Dosage: 1.5 GRAM, 2X/DAY:BID
     Route: 042
  2. DAPSONE. [Concomitant]
     Active Substance: DAPSONE
     Indication: ANTIFUNGAL PROPHYLAXIS
  3. HUMAN NORMAL IMMUNOGLOBULIN [Suspect]
     Active Substance: HUMAN IMMUNOGLOBULIN G
     Indication: PRODUCT USED FOR UNKNOWN INDICATION
     Dosage: 2 GRAM, PER KG
     Route: 042
  4. CICLOSPORIN [Suspect]
     Active Substance: CYCLOSPORINE
     Dosage: 5 MILLIGRAM/KILOGRAM
     Route: 065
  5. MEROPENEM. [Suspect]
     Active Substance: MEROPENEM
     Indication: PRODUCT USED FOR UNKNOWN INDICATION
     Dosage: 1000 MILLIGRAM, 3X/DAY:TID
     Route: 042
  6. METRONIDAZOLE. [Suspect]
     Active Substance: METRONIDAZOLE
     Indication: FREQUENT BOWEL MOVEMENTS
  7. CLINDAMYCIN HYDROCHLORIDE. [Suspect]
     Active Substance: CLINDAMYCIN HYDROCHLORIDE
     Indication: PRODUCT USED FOR UNKNOWN INDICATION
     Dosage: 600 MILLIGRAM, 3X/DAY:TID
     Route: 042
  8. METRONIDAZOLE. [Suspect]
     Active Substance: METRONIDAZOLE
     Indication: PYREXIA
     Dosage: 500 MILLIGRAM, 2X/DAY:BID
     Route: 048
  9. DAPSONE. [Concomitant]
     Active Substance: DAPSONE
     Indication: ANTIFUNGAL PROPHYLAXIS
     Dosage: 50 MILLIGRAM
  10. ANTITHYMOCYTE IMMUNOGLOBULIN (HORSE) [Suspect]
     Active Substance: EQUINE THYMOCYTE IMMUNE GLOBULIN
     Dosage: 40 MILLIGRAM/KILOGRAM
     Route: 065
  11. CIPROFLOXACIN HYDROCHLORIDE. [Suspect]
     Active Substance: CIPROFLOXACIN HYDROCHLORIDE
     Indication: PYREXIA
     Dosage: 500 MILLIGRAM, 2X/DAY:BID
     Route: 048
  12. CIPROFLOXACIN HYDROCHLORIDE. [Suspect]
     Active Substance: CIPROFLOXACIN HYDROCHLORIDE
     Indication: FREQUENT BOWEL MOVEMENTS
  13. PREDNISONE. [Suspect]
     Active Substance: PREDNISONE
     Indication: APLASTIC ANAEMIA
     Dosage: 30 MILLIGRAM, 1X/DAY:QD
     Route: 065
  14. ANTITHYMOCYTE IMMUNOGLOBULIN (HORSE) [Suspect]
     Active Substance: EQUINE THYMOCYTE IMMUNE GLOBULIN
     Indication: APLASTIC ANAEMIA
     Dosage: 5 DOSAGE FORM, UNK
     Route: 065
  15. PIPERACILLIN AND TAZOBACTAM [Concomitant]
     Active Substance: PIPERACILLIN SODIUM\TAZOBACTAM SODIUM
     Indication: ABDOMINAL PAIN
  16. VALTREX [Concomitant]
     Active Substance: VALACYCLOVIR HYDROCHLORIDE
     Indication: ANTIFUNGAL PROPHYLAXIS
  17. VALTREX [Concomitant]
     Active Substance: VALACYCLOVIR HYDROCHLORIDE
     Indication: ANTIFUNGAL PROPHYLAXIS
  18. CICLOSPORIN [Suspect]
     Active Substance: CYCLOSPORINE
     Indication: APLASTIC ANAEMIA
     Dosage: 225 MILLIGRAM, 2X/DAY:BID
     Route: 048
  19. VANCOMYCIN [Suspect]
     Active Substance: VANCOMYCIN
     Indication: FREQUENT BOWEL MOVEMENTS
  20. PANTOLOC [Concomitant]
     Active Substance: PANTOPRAZOLE SODIUM
     Indication: PRODUCT USED FOR UNKNOWN INDICATION
     Dosage: 40 MILLIGRAM
     Route: 048
  21. PREDNISONE. [Suspect]
     Active Substance: PREDNISONE
     Dosage: 1 MILLIGRAM/KILOGRAM
     Route: 065
  22. PIPERACILLIN AND TAZOBACTAM [Concomitant]
     Active Substance: PIPERACILLIN SODIUM\TAZOBACTAM SODIUM
     Indication: PYREXIA

REACTIONS (13)
  - Treatment noncompliance [Unknown]
  - Drug ineffective [Unknown]
  - Aplastic anaemia [Fatal]
  - Escherichia infection [Fatal]
  - Septic shock [Fatal]
  - Cardiac arrest [Fatal]
  - Cardiomegaly [Fatal]
  - Splenomegaly [Fatal]
  - Hypersensitivity [Unknown]
  - Drug resistance [Unknown]
  - Hepatic necrosis [Fatal]
  - Aeromonas infection [Fatal]
  - Necrotising fasciitis [Fatal]
